FAERS Safety Report 6810188-0 (Version None)
Quarter: 2010Q2

REPORT INFORMATION
  Report Type: 
  Country: None (occurrence: None)
  Receive Date: 20100630
  Receipt Date: 20100623
  Transmission Date: 20101027
  Serious: Yes (Life-Threatening, Hospitalization, Disabling, Other)
  Sender: FDA-Public Use
  Company Number: US-MERCK-1006USA03807

PATIENT
  Age: 84 Year
  Sex: Female

DRUGS (1)
  1. FOSAMAX [Suspect]
     Indication: OSTEOPOROSIS
     Route: 048
     Dates: start: 20010821, end: 20080623

REACTIONS (4)
  - CEREBROVASCULAR ACCIDENT [None]
  - FEMUR FRACTURE [None]
  - POST PROCEDURAL STROKE [None]
  - ULCER HAEMORRHAGE [None]
